FAERS Safety Report 17598005 (Version 1)
Quarter: 2020Q1

REPORT INFORMATION
  Report Type: Spontaneous
  Country: US (occurrence: US)
  Receive Date: 20200330
  Receipt Date: 20200330
  Transmission Date: 20200409
  Serious: No
  Sender: FDA-Public Use
  Company Number: US-PFIZER INC-2020125335

PATIENT
  Age: 47 Year
  Sex: Female

DRUGS (2)
  1. TOPAMAX [Interacting]
     Active Substance: TOPIRAMATE
     Dosage: UNK
  2. LYRICA [Suspect]
     Active Substance: PREGABALIN
     Dosage: UNK

REACTIONS (2)
  - Drug interaction [Unknown]
  - Feeling abnormal [Unknown]
